FAERS Safety Report 7788299-5 (Version None)
Quarter: 2011Q3

REPORT INFORMATION
  Report Type: 
  Country: None (occurrence: None)
  Receive Date: 20110930
  Receipt Date: 20110921
  Transmission Date: 20111222
  Serious: Yes (Other)
  Sender: FDA-Public Use
  Company Number: US-JNJFOC-20110700063

PATIENT
  Sex: Female
  Weight: 112.49 kg

DRUGS (15)
  1. TOPAMAX [Suspect]
     Indication: NEURALGIA
     Route: 048
  2. TOPAMAX [Suspect]
     Indication: NEUROPATHY PERIPHERAL
     Route: 048
     Dates: start: 20080101, end: 20110301
  3. BONIVA [Concomitant]
     Route: 065
  4. UNKNOWN MEDICATION [Concomitant]
     Route: 065
  5. TOPAMAX [Suspect]
     Route: 048
  6. NEXIUM [Concomitant]
     Route: 065
  7. TOPAMAX [Suspect]
     Indication: RADICULOPATHY
     Route: 048
  8. TOPAMAX [Suspect]
     Route: 048
     Dates: start: 20080101, end: 20110301
  9. TOPAMAX [Suspect]
     Route: 048
     Dates: start: 20080101, end: 20110301
  10. TOPAMAX [Suspect]
     Indication: FIBROMYALGIA
     Route: 048
     Dates: start: 20080101, end: 20110301
  11. TOPAMAX [Suspect]
     Route: 048
  12. CLONIDINE [Concomitant]
     Route: 065
  13. PRISTIQ [Concomitant]
     Route: 065
  14. CYTOMEL [Concomitant]
     Route: 065
  15. LEVOXYL [Concomitant]
     Route: 065

REACTIONS (2)
  - SPINAL COLUMN STENOSIS [None]
  - ALOPECIA [None]
